FAERS Safety Report 7245799-4 (Version None)
Quarter: 2011Q1

REPORT INFORMATION
  Report Type: 
  Country: None (occurrence: None)
  Receive Date: 20110126
  Receipt Date: 20110124
  Transmission Date: 20110831
  Serious: Yes (Life-Threatening)
  Sender: FDA-Public Use
  Company Number: DE-JNJFOC-20101202421

PATIENT
  Age: 77 Year
  Sex: Female

DRUGS (2)
  1. REOPRO [Suspect]
     Indication: MYOCARDIAL INFARCTION
     Route: 042
  2. REOPRO [Suspect]
     Route: 042

REACTIONS (5)
  - CARDIAC FAILURE CONGESTIVE [None]
  - CARDIAC TAMPONADE [None]
  - DIABETES MELLITUS [None]
  - DELIRIUM [None]
  - PYREXIA [None]
